FAERS Safety Report 14483476 (Version 2)
Quarter: 2018Q1

REPORT INFORMATION
  Report Type: Spontaneous
  Country: FR (occurrence: FR)
  Receive Date: 20180204
  Receipt Date: 20180216
  Transmission Date: 20180509
  Serious: Yes (Hospitalization, Other)
  Sender: FDA-Public Use
  Company Number: FR-009507513-1704FRA006069

PATIENT
  Age: 74 Year
  Sex: Female

DRUGS (13)
  1. COVERSYL (PERINDOPRIL ARGININE) [Suspect]
     Active Substance: PERINDOPRIL
     Indication: HYPERTENSION
     Dosage: 5 MG, PER DAY (1D)
     Route: 048
     Dates: start: 2015
  2. FORLAX [Suspect]
     Active Substance: POLYETHYLENE GLYCOL 4000
     Indication: CONSTIPATION
     Dosage: 1 UNK, PRN
     Route: 048
     Dates: start: 2015
  3. PAROXETINE. [Suspect]
     Active Substance: PAROXETINE
     Indication: DEPRESSION
     Dosage: 20 MG,  PER DAY (1D)
     Route: 048
     Dates: start: 2015
  4. NATISPRAY [Suspect]
     Active Substance: NITROGLYCERIN
     Indication: ANGINA PECTORIS
     Dosage: FORMULATION REPORTED AS 0.30/ DOSE SOLUTION FOR ORAL SPRAY;ROUTE: ORAL SPRAY, 0.3 MG, UNK, 0.3 MG,1D
     Route: 002
     Dates: start: 2015
  5. DOLIPRANE [Suspect]
     Active Substance: ACETAMINOPHEN
     Indication: PAIN
     Dosage: 1 G, 1D
     Route: 048
     Dates: start: 2015
  6. KARDEGIC [Suspect]
     Active Substance: ASPIRIN DL-LYSINE
     Indication: THROMBOSIS PROPHYLAXIS
     Dosage: 75 MG IN SACHET DOSE, 1 PER DAY (1D )
     Route: 048
     Dates: start: 2015, end: 20170403
  7. SECTRAL [Suspect]
     Active Substance: ACEBUTOLOL HYDROCHLORIDE
     Indication: HYPERTENSION
     Dosage: 200 MG, 1D
     Route: 048
  8. DI-HYDAN [Suspect]
     Active Substance: PHENYTOIN
     Indication: EPILEPSY
     Dosage: 100 MG, 1 D
     Route: 048
     Dates: start: 2015
  9. EZETROL [Suspect]
     Active Substance: EZETIMIBE
     Indication: HYPERLIPIDAEMIA
     Dosage: 10 MG, 1 PER DAY (1D)
     Route: 048
     Dates: start: 2015
  10. TRAMADOL HYDROCHLORIDE. [Suspect]
     Active Substance: TRAMADOL HYDROCHLORIDE
     Indication: PAIN
     Dosage: 200 MG, 1D
     Route: 048
     Dates: start: 2015
  11. CRESTOR [Suspect]
     Active Substance: ROSUVASTATIN CALCIUM
     Indication: HYPERLIPIDAEMIA
     Dosage: 20 MG, 1 D (1 PER DAY )
     Route: 048
     Dates: start: 2015
  12. OMEPRAZOLE. [Suspect]
     Active Substance: OMEPRAZOLE
     Indication: PROPHYLAXIS AGAINST GASTROINTESTINAL ULCER
     Dosage: 20 MG,  PER DAY (1D)
     Route: 048
     Dates: start: 2015
  13. LAROXYL [Suspect]
     Active Substance: AMITRIPTYLINE HYDROCHLORIDE
     Indication: DEPRESSION
     Dosage: 25 MG, 1 D
     Route: 048
     Dates: start: 2015

REACTIONS (2)
  - Immune thrombocytopenic purpura [Recovering/Resolving]
  - Thrombocytopenia [Recovering/Resolving]

NARRATIVE: CASE EVENT DATE: 20170330
